FAERS Safety Report 6431821-1 (Version None)
Quarter: 2009Q4

REPORT INFORMATION
  Report Type: 
  Country: None (occurrence: None)
  Receive Date: 20091104
  Receipt Date: 20091021
  Transmission Date: 20100525
  Serious: Yes (Hospitalization)
  Sender: FDA-Public Use
  Company Number: POMP-1000748

PATIENT
  Age: 20 Year
  Sex: Female
  Weight: 73 kg

DRUGS (7)
  1. MYOZYME [Suspect]
     Indication: GLYCOGEN STORAGE DISEASE TYPE II
     Dosage: 1400 MG, Q2W, INTRAVENOUS
     Route: 042
     Dates: start: 20080201
  2. PALLADONE [Concomitant]
  3. LEVOPROMAZIN (LEVOMEPROMAZINE) [Concomitant]
  4. LORAZEPAM [Concomitant]
  5. JODTHYROX (LEVOTHYROXINE SODIUM, POTASSIUM IODIDE) [Concomitant]
  6. JUMISTA (HYDROMORPHONE) [Concomitant]
  7. MIRTAZAPINE [Concomitant]

REACTIONS (7)
  - CYSTITIS [None]
  - ERYTHEMA [None]
  - HEADACHE [None]
  - INFUSION RELATED REACTION [None]
  - PRURITUS [None]
  - SWELLING FACE [None]
  - URTICARIA [None]
